FAERS Safety Report 22001682 (Version 2)
Quarter: 2023Q1

REPORT INFORMATION
  Report Type: Spontaneous
  Country: US (occurrence: US)
  Receive Date: 20230216
  Receipt Date: 20230324
  Transmission Date: 20230417
  Serious: No
  Sender: FDA-Public Use
  Company Number: US-BAUSCH-BL-2023-002653

PATIENT
  Age: 72 Year
  Sex: Male
  Weight: 83.536 kg

DRUGS (2)
  1. BRYHALI [Suspect]
     Active Substance: HALOBETASOL PROPIONATE
     Indication: Psoriasis
     Route: 061
     Dates: start: 202212
  2. HALOBETASOL PROPIONATE [Concomitant]
     Active Substance: HALOBETASOL PROPIONATE
     Indication: Psoriasis

REACTIONS (2)
  - Therapeutic product effect decreased [Unknown]
  - Inability to afford medication [Unknown]
